FAERS Safety Report 10856190 (Version 2)
Quarter: 2015Q1

REPORT INFORMATION
  Report Type: Report from Study
  Country: NL (occurrence: NL)
  Receive Date: 20150223
  Receipt Date: 20150227
  Transmission Date: 20150721
  Serious: Yes (Death)
  Sender: FDA-Public Use
  Company Number: PHHY2015NL020755

PATIENT
  Age: 74 Year
  Sex: Male

DRUGS (3)
  1. ACLASTA [Suspect]
     Active Substance: ZOLEDRONIC ACID
     Dosage: 5 MG, UNK (ONCE EVERY 52 WEEKS)
     Route: 042
     Dates: start: 20130124
  2. ACLASTA [Suspect]
     Active Substance: ZOLEDRONIC ACID
     Indication: OSTEOPOROSIS
     Dosage: 5 MG, UNK (ONCE EVERY 52 WEEKS)
     Route: 042
     Dates: start: 20091217
  3. ACLASTA [Suspect]
     Active Substance: ZOLEDRONIC ACID
     Dosage: 5 MG, UNK (ONCE EVERY 52 WEEKS)
     Route: 042
     Dates: start: 20140121

REACTIONS (1)
  - Death [Fatal]

NARRATIVE: CASE EVENT DATE: 20140522
